FAERS Safety Report 16527184 (Version 2)
Quarter: 2019Q4

REPORT INFORMATION
  Report Type: Spontaneous
  Country: US (occurrence: US)
  Receive Date: 20190703
  Receipt Date: 20191113
  Transmission Date: 20200122
  Serious: Yes (Death, Other)
  Sender: FDA-Public Use
  Company Number: US-ASTRAZENECA-2019SE93082

PATIENT
  Sex: Male
  Weight: 95.3 kg

DRUGS (17)
  1. LASIX [Concomitant]
     Active Substance: FUROSEMIDE
  2. ZOCOR [Concomitant]
     Active Substance: SIMVASTATIN
  3. TRAMADOL. [Concomitant]
     Active Substance: TRAMADOL
  4. NEXIUM [Suspect]
     Active Substance: ESOMEPRAZOLE MAGNESIUM
     Route: 048
     Dates: start: 2006, end: 2014
  5. AMOXICILLIN. [Concomitant]
     Active Substance: AMOXICILLIN
  6. OMEPRAZOLE. [Suspect]
     Active Substance: OMEPRAZOLE
     Dosage: GENERIC
     Route: 065
     Dates: start: 2006, end: 2014
  7. COREG [Concomitant]
     Active Substance: CARVEDILOL
  8. NORVASC [Concomitant]
     Active Substance: AMLODIPINE BESYLATE
  9. INSULIN [Concomitant]
     Active Substance: INSULIN NOS
  10. GLUCERNA [Concomitant]
     Active Substance: AMINO ACIDS\DEXTROSE\ELECTROLYTES NOS\SOYBEAN OIL\VITAMINS
  11. METOPROLOL. [Concomitant]
     Active Substance: METOPROLOL
  12. ALLOPURINOL. [Concomitant]
     Active Substance: ALLOPURINOL
  13. METOCLOPRAMIDE. [Concomitant]
     Active Substance: METOCLOPRAMIDE
  14. DOXYCYCLIN [Concomitant]
     Active Substance: DOXYCYCLINE
  15. PREVACID [Suspect]
     Active Substance: LANSOPRAZOLE
     Route: 065
     Dates: start: 2006, end: 2014
  16. DIATX [Concomitant]
     Active Substance: ASCORBIC ACID\BIOTIN\CALCIUM PANTOTHENATE\CYANOCOBALAMIN CO-57\FOLIC ACID\NIACINAMIDE\PYRIDOXINE HYDROCHLORIDE\RIBOFLAVIN\THIAMINE MONONITRATE
  17. REGLAN [Concomitant]
     Active Substance: METOCLOPRAMIDE HYDROCHLORIDE

REACTIONS (7)
  - Chronic kidney disease [Unknown]
  - Diabetes mellitus [Unknown]
  - Acute kidney injury [Unknown]
  - Sepsis [Unknown]
  - Renal failure [Unknown]
  - Cardiac failure [Unknown]
  - End stage renal disease [Unknown]
